FAERS Safety Report 13364948 (Version 3)
Quarter: 2017Q2

REPORT INFORMATION
  Report Type: Spontaneous
  Country: FR (occurrence: FR)
  Receive Date: 20170323
  Receipt Date: 20170616
  Transmission Date: 20170830
  Serious: Yes (Hospitalization, Disabling, Other)
  Sender: FDA-Public Use
  Company Number: FR-BRISTOL-MYERS SQUIBB COMPANY-BMS-2017-023556

PATIENT
  Age: 79 Year
  Sex: Female
  Weight: 96 kg

DRUGS (6)
  1. HYDROCORTISONE. [Suspect]
     Active Substance: HYDROCORTISONE
     Indication: PRODUCT USED FOR UNKNOWN INDICATION
     Dosage: 20 MG, QD
     Route: 048
     Dates: start: 20161129
  2. HYDROCORTISONE. [Suspect]
     Active Substance: HYDROCORTISONE
     Indication: PRODUCT USED FOR UNKNOWN INDICATION
     Dosage: 20 MG, QD
     Route: 048
     Dates: end: 20161124
  3. CORTANCYL [Suspect]
     Active Substance: PREDNISONE
     Indication: CHRONIC OBSTRUCTIVE PULMONARY DISEASE
     Dosage: 4 DF, QD
     Route: 048
     Dates: start: 20161125, end: 20161127
  4. LOVENOX [Suspect]
     Active Substance: ENOXAPARIN SODIUM
     Indication: ATRIAL FIBRILLATION
     Dosage: 1 DF, BID
     Route: 058
     Dates: start: 20161125, end: 20161128
  5. ELIQUIS [Suspect]
     Active Substance: APIXABAN
     Indication: CEREBROVASCULAR ACCIDENT PROPHYLAXIS
     Dosage: 1 TAB, BID
     Route: 048
     Dates: start: 20161120, end: 20161129
  6. NOVATREX (METHOTREXATE) [Suspect]
     Active Substance: METHOTREXATE SODIUM
     Indication: RHEUMATIC DISORDER
     Dosage: 1 TAB, QWK
     Route: 048

REACTIONS (7)
  - Sensorimotor disorder [Recovered/Resolved with Sequelae]
  - Contraindicated product administered [Unknown]
  - Spinal osteoarthritis [Unknown]
  - Spinal cord compression [Recovered/Resolved with Sequelae]
  - Extradural haematoma [Recovered/Resolved with Sequelae]
  - Anal incontinence [Recovered/Resolved with Sequelae]
  - Lumbar puncture [Unknown]

NARRATIVE: CASE EVENT DATE: 20161128
